FAERS Safety Report 12383511 (Version 1)
Quarter: 2016Q2

REPORT INFORMATION
  Report Type: Spontaneous
  Country: DK (occurrence: DK)
  Receive Date: 20160518
  Receipt Date: 20160518
  Transmission Date: 20160815
  Serious: Yes (Hospitalization)
  Sender: FDA-Public Use
  Company Number: DK-MYLANLABS-2016M1020633

PATIENT

DRUGS (3)
  1. METANDIENONE [Suspect]
     Active Substance: METHANDROSTENOLONE
     Indication: PRODUCT USED FOR UNKNOWN INDICATION
     Dosage: 60MG DAILY
     Route: 048
  2. NANDROLONE [Suspect]
     Active Substance: NANDROLONE
     Indication: DRUG ABUSE
     Dosage: 1 AMPOULE; WEEKLY
     Route: 030
  3. TESTOSTERONE. [Suspect]
     Active Substance: TESTOSTERONE
     Indication: MUSCLE BUILDING THERAPY
     Dosage: 1000MG WEEKLY
     Route: 030

REACTIONS (4)
  - Drug abuse [Recovered/Resolved]
  - Pulmonary arterial pressure increased [Recovered/Resolved]
  - Atelectasis [Recovered/Resolved]
  - Pulmonary haemorrhage [Recovered/Resolved]
